FAERS Safety Report 17671539 (Version 1)
Quarter: 2020Q2

REPORT INFORMATION
  Report Type: Spontaneous
  Country: US (occurrence: US)
  Receive Date: 20200415
  Receipt Date: 20200415
  Transmission Date: 20200713
  Serious: Yes (Other)
  Sender: FDA-Public Use
  Company Number: US-TEVA-2020-US-1220134

PATIENT
  Age: 48 Year
  Sex: Female

DRUGS (2)
  1. TRAMADOL. [Suspect]
     Active Substance: TRAMADOL
     Route: 065
  2. OXYCONTIN [Suspect]
     Active Substance: OXYCODONE HYDROCHLORIDE
     Route: 065

REACTIONS (13)
  - Neuropathy peripheral [Unknown]
  - Heart rate irregular [Unknown]
  - Menopausal symptoms [Unknown]
  - Spinal operation [Unknown]
  - Insomnia [Unknown]
  - Pain [Unknown]
  - Post-traumatic stress disorder [Unknown]
  - Maternal exposure during breast feeding [Unknown]
  - Muscle spasms [Unknown]
  - Maternal exposure during pregnancy [Unknown]
  - Emotional distress [Unknown]
  - Live birth [Unknown]
  - Spinal fusion surgery [Unknown]

NARRATIVE: CASE EVENT DATE: 2005
